FAERS Safety Report 4526014-9 (Version None)
Quarter: 2004Q4

REPORT INFORMATION
  Report Type: 
  Country: None (occurrence: None)
  Receive Date: 20041213
  Receipt Date: 20041213
  Transmission Date: 20050328
  Serious: Yes (Other)
  Sender: FDA-Public Use
  Company Number: None

PATIENT
  Age: 89 Year
  Sex: Female
  Weight: 55 kg

DRUGS (1)
  1. MAXIPIME [Suspect]
     Indication: URINARY TRACT INFECTION
     Dosage: 2GRAM   Q24H   INTRAVENOU
     Route: 042
     Dates: start: 20041101, end: 20041105

REACTIONS (3)
  - COMA [None]
  - CONVULSION [None]
  - RENAL FAILURE [None]
